FAERS Safety Report 4310169-5 (Version None)
Quarter: 2004Q1

REPORT INFORMATION
  Report Type: 
  Country: None (occurrence: None)
  Receive Date: 20040302
  Receipt Date: 20040302
  Transmission Date: 20041129
  Serious: Yes (Other)
  Sender: FDA-Public Use
  Company Number: None

PATIENT
  Age: 57 Year
  Sex: Female
  Weight: 72.5755 kg

DRUGS (4)
  1. PAROXETINE HCL [Suspect]
     Indication: DYSTHYMIC DISORDER
     Dosage: 40 MG PO
     Route: 048
     Dates: start: 19991101
  2. REMERON [Concomitant]
  3. VISTEROL [Concomitant]
  4. LOMOTIL [Concomitant]

REACTIONS (5)
  - DIZZINESS [None]
  - DRUG EFFECT DECREASED [None]
  - GASTROINTESTINAL DISORDER [None]
  - IRRITABILITY [None]
  - PHARMACEUTICAL PRODUCT COMPLAINT [None]
